FAERS Safety Report 16074518 (Version 4)
Quarter: 2019Q2

REPORT INFORMATION
  Report Type: Report from Study
  Country: US (occurrence: US)
  Receive Date: 20190314
  Receipt Date: 20190523
  Transmission Date: 20190711
  Serious: Yes (Other)
  Sender: FDA-Public Use
  Company Number: PHEH2019US011006

PATIENT
  Sex: Female

DRUGS (1)
  1. GILENYA [Suspect]
     Active Substance: FINGOLIMOD HYDROCHLORIDE
     Indication: MULTIPLE SCLEROSIS
     Dosage: 0.5 MG, QD
     Route: 048

REACTIONS (6)
  - Nasopharyngitis [Unknown]
  - Multiple sclerosis [Unknown]
  - Meniscus injury [Unknown]
  - Malaise [Unknown]
  - Joint injury [Unknown]
  - Fatigue [Unknown]
